FAERS Safety Report 5647270-X (Version None)
Quarter: 2008Q1

REPORT INFORMATION
  Report Type: 
  Country: None (occurrence: None)
  Receive Date: 20080303
  Receipt Date: 20080227
  Transmission Date: 20080703
  Serious: Yes (Hospitalization)
  Sender: FDA-Public Use
  Company Number: US-BRACCO-BDI-010717

PATIENT
  Age: 50 Year
  Sex: Female

DRUGS (10)
  1. ISOVUE-128 [Suspect]
     Indication: METASTATIC NEOPLASM
     Route: 042
     Dates: start: 20071126, end: 20071126
  2. ISOVUE-128 [Suspect]
     Indication: COMPUTERISED TOMOGRAM
     Route: 042
     Dates: start: 20071126, end: 20071126
  3. BENADRYL [Concomitant]
     Route: 048
     Dates: start: 20071126, end: 20071126
  4. PREDNISONE TAB [Concomitant]
     Route: 048
     Dates: start: 20071126, end: 20071126
  5. TAPAZOLE [Concomitant]
     Route: 065
  6. BENZOATE [Concomitant]
     Route: 065
  7. PEGFILGRASTIM [Concomitant]
     Route: 065
  8. DEXAMETHASONE TAB [Concomitant]
     Route: 065
  9. DOCETAXEL [Concomitant]
     Route: 065
  10. ZOMETA [Suspect]
     Route: 065

REACTIONS (19)
  - ANOREXIA [None]
  - ANXIETY [None]
  - ASTHENIA [None]
  - AZOTAEMIA [None]
  - COUGH [None]
  - DIALYSIS [None]
  - DIARRHOEA [None]
  - DYSPNOEA [None]
  - FATIGUE [None]
  - HYPERKALAEMIA [None]
  - HYPERNATRAEMIA [None]
  - MENTAL STATUS CHANGES [None]
  - NEPHROPATHY TOXIC [None]
  - PAIN [None]
  - PYREXIA [None]
  - REFUSAL OF TREATMENT BY PATIENT [None]
  - RENAL FAILURE CHRONIC [None]
  - RENAL TUBULAR NECROSIS [None]
  - WEIGHT DECREASED [None]
